FAERS Safety Report 10429357 (Version 1)
Quarter: 2014Q3

REPORT INFORMATION
  Report Type: Spontaneous
  Country: US (occurrence: None)
  Receive Date: 20140725
  Receipt Date: 20140725
  Transmission Date: 20150326
  Serious: Yes (Other)
  Sender: FDA-Public Use
  Company Number: 163-50794-14033004

PATIENT
  Sex: Male
  Weight: 78.29 kg

DRUGS (8)
  1. NORVASC (AMLODIPINE) [Concomitant]
  2. COPPER GLUCONATE (COPPER GLUCONATE) [Concomitant]
  3. VASOTEC (ENALAPRIL MALEATE) [Concomitant]
  4. EFUDEX [Concomitant]
     Active Substance: FLUOROURACIL
  5. VIDAZA [Suspect]
     Active Substance: AZACITIDINE
     Indication: MYELODYSPLASTIC SYNDROME
     Dosage: 7 IN 28D
     Route: 058
     Dates: start: 20120128
  6. CALCIUM 600 + D3 (CALCIUM D3 ^STADA^) [Concomitant]
  7. VITAMIN E [Concomitant]
     Active Substance: .ALPHA.-TOCOPHEROL
  8. FISH OIL (FISH OIL) [Concomitant]
     Active Substance: FISH OIL

REACTIONS (3)
  - Disease progression [None]
  - Injection site cellulitis [None]
  - Myelodysplastic syndrome [None]
